FAERS Safety Report 4845190-1 (Version None)
Quarter: 2005Q4

REPORT INFORMATION
  Report Type: 
  Country: None (occurrence: None)
  Receive Date: 20051205
  Receipt Date: 20020924
  Transmission Date: 20060501
  Serious: Yes (Hospitalization)
  Sender: FDA-Public Use
  Company Number: FR-ROCHE-322056

PATIENT
  Age: 43 Year
  Sex: Male
  Weight: 55 kg

DRUGS (17)
  1. CYMEVAN ORAL [Suspect]
     Route: 048
     Dates: end: 20020702
  2. BACTRIM [Suspect]
     Route: 065
     Dates: start: 20020416
  3. VALCYTE [Suspect]
     Route: 048
     Dates: start: 20020702, end: 20020710
  4. RIVOTRIL [Suspect]
     Route: 048
     Dates: start: 20020727, end: 20020729
  5. RIVOTRIL [Suspect]
     Route: 048
     Dates: start: 20020730, end: 20020829
  6. RIVOTRIL [Suspect]
     Route: 048
     Dates: start: 20020830, end: 20020902
  7. OSFOLATE [Suspect]
     Route: 065
     Dates: start: 20020416
  8. VIREAD [Suspect]
     Indication: HIV INFECTION
     Route: 048
     Dates: start: 20020416, end: 20020717
  9. KALETRA [Suspect]
     Indication: HIV INFECTION
     Route: 048
     Dates: start: 20020416, end: 20020717
  10. VIRAMUNE [Suspect]
     Indication: HIV INFECTION
     Route: 048
     Dates: start: 20020416, end: 20020717
  11. NEURONTIN [Suspect]
     Indication: NEUROPATHY PERIPHERAL
     Route: 048
     Dates: start: 20020620, end: 20020725
  12. RIFATER [Suspect]
     Indication: DRUG USE FOR UNKNOWN INDICATION
     Route: 048
     Dates: start: 20020724, end: 20020823
  13. MYAMBUTOL [Suspect]
     Indication: DRUG USE FOR UNKNOWN INDICATION
     Route: 048
     Dates: start: 20020724
  14. ZECLAR [Suspect]
     Indication: DRUG USE FOR UNKNOWN INDICATION
     Route: 048
     Dates: start: 20020724
  15. UNSPECIFIED DRUG [Concomitant]
     Dosage: DRUG CLARIFIED AS 'OFLOCEL'
     Route: 042
     Dates: start: 20020828
  16. PARACETAMOL [Concomitant]
     Dates: start: 20020718, end: 20020725
  17. IMODIUM [Concomitant]
     Dates: start: 20020711, end: 20020725

REACTIONS (11)
  - BLOOD CREATININE INCREASED [None]
  - COMA [None]
  - DEHYDRATION [None]
  - DIARRHOEA [None]
  - HAEMOGLOBIN DECREASED [None]
  - LEUKOPENIA [None]
  - NEUROPATHY PERIPHERAL [None]
  - NEUTROPENIA [None]
  - PLATELET COUNT DECREASED [None]
  - PLATELET COUNT INCREASED [None]
  - TUBERCULOSIS LIVER [None]
